FAERS Safety Report 7788005-4 (Version None)
Quarter: 2011Q3

REPORT INFORMATION
  Report Type: 
  Country: None (occurrence: None)
  Receive Date: 20110930
  Receipt Date: 20091103
  Transmission Date: 20111222
  Serious: No
  Sender: FDA-Public Use
  Company Number: 2009BI036044

PATIENT
  Sex: Female

DRUGS (3)
  1. TYSABRI [Suspect]
     Indication: MULTIPLE SCLEROSIS
     Route: 042
     Dates: start: 20090804
  2. AVONEX [Concomitant]
     Indication: MULTIPLE SCLEROSIS
     Route: 030
     Dates: start: 20010103
  3. STEROIDS [NOS] [Concomitant]

REACTIONS (14)
  - THYROID DISORDER [None]
  - ASTHENIA [None]
  - GAIT DISTURBANCE [None]
  - APHASIA [None]
  - BLINDNESS [None]
  - NECK PAIN [None]
  - BALANCE DISORDER [None]
  - INSOMNIA [None]
  - GENERAL SYMPTOM [None]
  - DEPRESSION [None]
  - POLLAKIURIA [None]
  - FATIGUE [None]
  - DIPLOPIA [None]
  - MEMORY IMPAIRMENT [None]
